FAERS Safety Report 18921034 (Version 1)
Quarter: 2021Q1

REPORT INFORMATION
  Report Type: Other
  Country: US (occurrence: US)
  Receive Date: 20210222
  Receipt Date: 20210222
  Transmission Date: 20210420
  Serious: No
  Sender: FDA-Public Use
  Company Number: US-ROCHE-2774668

PATIENT
  Sex: Female

DRUGS (15)
  1. TIZANIDINE. [Concomitant]
     Active Substance: TIZANIDINE
     Dates: start: 20190209
  2. PROMETHAZINE [Concomitant]
     Active Substance: PROMETHAZINE HYDROCHLORIDE
     Dates: start: 20181206
  3. RANITIDINE. [Concomitant]
     Active Substance: RANITIDINE
     Dosage: 300 MG
     Dates: start: 20190227
  4. DICLOFENAC SODIUM. [Concomitant]
     Active Substance: DICLOFENAC SODIUM
     Dates: start: 20190103
  5. SILENOR [Concomitant]
     Active Substance: DOXEPIN HYDROCHLORIDE
     Dates: start: 20190212
  6. ONDANSETRON [Concomitant]
     Active Substance: ONDANSETRON
     Dates: start: 20181207
  7. OCREVUS [Suspect]
     Active Substance: OCRELIZUMAB
     Indication: RELAPSING MULTIPLE SCLEROSIS
     Dosage: INITIAL DOSE?DAY 1 AND DAY 15, THEN 600 MG ONCE PER 6 MONTHS
     Route: 042
     Dates: start: 20191218
  8. MODAFINIL. [Concomitant]
     Active Substance: MODAFINIL
     Dates: start: 20190214
  9. BACLOFEN. [Concomitant]
     Active Substance: BACLOFEN
     Dates: start: 20181226
  10. OXYCODONE [Concomitant]
     Active Substance: OXYCODONE
     Dates: start: 20190224
  11. PRAVASTATINE [Concomitant]
     Active Substance: PRAVASTATIN
     Dates: start: 20181226
  12. OCREVUS [Suspect]
     Active Substance: OCRELIZUMAB
     Route: 042
     Dates: start: 20200618
  13. PANTOPRAZOLE [Concomitant]
     Active Substance: PANTOPRAZOLE
     Dates: start: 20190227
  14. TOPIRAMATE. [Concomitant]
     Active Substance: TOPIRAMATE
     Dates: start: 20181226
  15. ZOLPIDEM [Concomitant]
     Active Substance: ZOLPIDEM TARTRATE
     Dates: start: 20190209

REACTIONS (1)
  - COVID-19 [Recovered/Resolved]
